FAERS Safety Report 14193362 (Version 1)
Quarter: 2017Q4

REPORT INFORMATION
  Report Type: Spontaneous
  Country: US (occurrence: US)
  Receive Date: 20171115
  Receipt Date: 20171115
  Transmission Date: 20180321
  Serious: No
  Sender: FDA-Public Use
  Company Number: US-BAUSCH-BL-2017-001203

PATIENT
  Age: 57 Year
  Sex: Female
  Weight: 66.28 kg

DRUGS (2)
  1. AMANTIDINE [Concomitant]
     Active Substance: AMANTADINE
     Indication: PRODUCT USED FOR UNKNOWN INDICATION
  2. XENAZINE [Suspect]
     Active Substance: TETRABENAZINE
     Indication: TARDIVE DYSKINESIA
     Dosage: TWO TABLETS THREE TIMES DAILY
     Route: 048
     Dates: start: 201512

REACTIONS (5)
  - Fall [Unknown]
  - Prescribed overdose [Unknown]
  - Constipation [Unknown]
  - Insomnia [Unknown]
  - Off label use [Unknown]

NARRATIVE: CASE EVENT DATE: 201512
